FAERS Safety Report 7050297-7 (Version None)
Quarter: 2010Q4

REPORT INFORMATION
  Report Type: 
  Country: None (occurrence: None)
  Receive Date: 20101013
  Receipt Date: 20100928
  Transmission Date: 20110411
  Serious: Yes (Death)
  Sender: FDA-Public Use
  Company Number: 2010ST000128

PATIENT
  Age: 79 Year
  Sex: Male

DRUGS (9)
  1. OMEPRAZOLE [Suspect]
  2. AZATHIOPRINE [Suspect]
     Dosage: 125 MG; PO
     Route: 048
     Dates: start: 20081114, end: 20081226
  3. ACETYLCYSTEINE [Suspect]
     Dosage: 100 MG; PO
     Route: 048
     Dates: start: 20081114, end: 20081226
  4. ALENDRONATE SODIUM [Suspect]
     Dosage: 340 MG; PO
     Route: 048
     Dates: start: 20081114
  5. PREDNISOLONE [Suspect]
  6. DIGOXIN [Suspect]
  7. WARFARIN SODIUM [Concomitant]
  8. CANDESARTAN CILEXETIL [Concomitant]
  9. ATORVASTATIN CALCIUM [Concomitant]

REACTIONS (5)
  - ERYTHEMA [None]
  - NEUTROPENIA [None]
  - SEPSIS [None]
  - SKIN EXFOLIATION [None]
  - TOXIC EPIDERMAL NECROLYSIS [None]
